FAERS Safety Report 9444547 (Version 1)
Quarter: 2013Q3

REPORT INFORMATION
  Report Type: Spontaneous
  Country: US (occurrence: US)
  Receive Date: 20130807
  Receipt Date: 20130807
  Transmission Date: 20140515
  Serious: No
  Sender: FDA-Public Use
  Company Number: US-PFIZER INC-2013225079

PATIENT
  Age: 66 Year
  Sex: Female
  Weight: 53.52 kg

DRUGS (13)
  1. DOXYCYCLINE HYCLATE [Suspect]
     Indication: LYME DISEASE
     Dosage: 100 MG, 2X/DAY
     Dates: start: 201307
  2. DOXYCYCLINE HYCLATE [Suspect]
     Indication: PAIN
  3. IBUPROFEN [Concomitant]
     Indication: PAIN
     Dosage: 600 MG, AS NEEDED (THREE CAPSULES EACH OF 200MG AT ONE TIME)
     Route: 048
  4. LYRICA [Concomitant]
     Indication: FIBROMYALGIA
     Dosage: 50 MG, UNK
     Dates: start: 2013, end: 2013
  5. LYRICA [Concomitant]
     Dosage: 150MG IN MORNING AND 50MG AT NIGHT, 2X/DAY
     Dates: start: 2013
  6. TYLENOL #3 [Concomitant]
     Indication: LYME DISEASE
     Dosage: UNK
     Dates: start: 201307
  7. TYLENOL #3 [Concomitant]
     Indication: PAIN
  8. VALIUM [Concomitant]
     Indication: LYME DISEASE
     Dosage: UNK
     Dates: start: 201307
  9. VALIUM [Concomitant]
     Indication: PAIN
  10. NABUMETONE [Concomitant]
     Indication: LYME DISEASE
     Dosage: 750 MG, 2X/DAY
     Dates: start: 201307
  11. NABUMETONE [Concomitant]
     Indication: LYME DISEASE
  12. NABUMETONE [Concomitant]
     Indication: PAIN
  13. STEROIDS [Concomitant]
     Indication: INTERVERTEBRAL DISC DISORDER

REACTIONS (2)
  - Drug ineffective [Unknown]
  - Nausea [Unknown]
